FAERS Safety Report 14425082 (Version 1)
Quarter: 2018Q1

REPORT INFORMATION
  Report Type: Spontaneous
  Country: IN (occurrence: IN)
  Receive Date: 20180123
  Receipt Date: 20180123
  Transmission Date: 20180509
  Serious: Yes (Hospitalization)
  Sender: FDA-Public Use
  Company Number: IN-VIRTUS PHARMACEUTICALS, LLC-2018VTS00001

PATIENT
  Age: 30 Year
  Sex: Female

DRUGS (5)
  1. DAPSONE. [Suspect]
     Active Substance: DAPSONE
     Indication: LEPROMATOUS LEPROSY
     Dosage: 100 MG, 1X/DAY ON DAY 1
     Route: 065
  2. DAPSONE. [Suspect]
     Active Substance: DAPSONE
     Dosage: 100 MG, 1X/DAY FOR 27 DAYS (SUCH 4 WEEKS GIVEN FOR 12 MONTHS)
     Route: 065
  3. CLOFAZIMINE [Concomitant]
     Active Substance: CLOFAZIMINE
     Dosage: 50 MG, 1X/DAY FOR 27 DAYS (SUCH 4 WEEKS GIVEN FOR 12 MONTHS)
     Route: 065
  4. RIFAMPICIN [Concomitant]
     Active Substance: RIFAMPIN
     Indication: LEPROMATOUS LEPROSY
     Dosage: 600 MG, 1X/DAY ON DAY 1 (SUCH 4 WEEKS GIVEN FOR 12 MONTHS)
     Route: 065
  5. CLOFAZIMINE [Concomitant]
     Active Substance: CLOFAZIMINE
     Indication: LEPROMATOUS LEPROSY
     Dosage: 300 MG, 1X/DAY ON DAY 1
     Route: 065

REACTIONS (1)
  - Drug reaction with eosinophilia and systemic symptoms [Recovered/Resolved]
